FAERS Safety Report 5400256-2 (Version None)
Quarter: 2007Q3

REPORT INFORMATION
  Report Type: 
  Country: None (occurrence: None)
  Receive Date: 20070727
  Receipt Date: 20070727
  Transmission Date: 20080115
  Serious: Yes (Other)
  Sender: FDA-Public Use
  Company Number: None

PATIENT
  Sex: Female
  Weight: 62.5964 kg

DRUGS (2)
  1. ALBUTEROL SULFATE [Suspect]
     Indication: ASTHMA
     Dosage: 1 PUFF 2X DAY INHAL
     Route: 055
     Dates: start: 20070720, end: 20070721
  2. ALBUTEROL SULFATE [Suspect]
     Indication: BRONCHITIS
     Dosage: 1 PUFF 2X DAY INHAL
     Route: 055
     Dates: start: 20070720, end: 20070721

REACTIONS (1)
  - DRUG HYPERSENSITIVITY [None]
